FAERS Safety Report 6600132-3 (Version None)
Quarter: 2010Q1

REPORT INFORMATION
  Report Type: 
  Country: None (occurrence: None)
  Receive Date: 20100217
  Receipt Date: 20100201
  Transmission Date: 20100710
  Serious: Yes (Death, Hospitalization)
  Sender: FDA-Public Use
  Company Number: 2010000379

PATIENT
  Age: 52 Year
  Sex: Female

DRUGS (4)
  1. ELOTINIB [Suspect]
     Indication: NON-SMALL CELL LUNG CANCER
     Dosage: 150 MG, ORAL; 150 MG, ORAL; 100 MG, ORAL
     Route: 048
     Dates: start: 20090814, end: 20090820
  2. ELOTINIB [Suspect]
     Indication: NON-SMALL CELL LUNG CANCER
     Dosage: 150 MG, ORAL; 150 MG, ORAL; 100 MG, ORAL
     Route: 048
     Dates: start: 20090824, end: 20090906
  3. ELOTINIB [Suspect]
     Indication: NON-SMALL CELL LUNG CANCER
     Dosage: 150 MG, ORAL; 150 MG, ORAL; 100 MG, ORAL
     Route: 048
     Dates: start: 20090907, end: 20090920
  4. PREDNISOLONE (PRENDISOLONE) [Concomitant]

REACTIONS (2)
  - DYSPHAGIA [None]
  - PNEUMONIA [None]
